FAERS Safety Report 4734001-0 (Version None)
Quarter: 2005Q3

REPORT INFORMATION
  Report Type: 
  Country: None (occurrence: None)
  Receive Date: 20050721
  Receipt Date: 20050509
  Transmission Date: 20060218
  Serious: No
  Sender: FDA-Public Use
  Company Number: 2005SP000642

PATIENT
  Sex: Female

DRUGS (5)
  1. LUNESTA [Suspect]
     Dosage: 2 MG;ORAL,    5 MG;ORAL
     Route: 048
     Dates: start: 20050505, end: 20050505
  2. LUNESTA [Suspect]
     Dosage: 2 MG;ORAL,    5 MG;ORAL
     Route: 048
     Dates: start: 20050506, end: 20050508
  3. LUNESTA [Suspect]
  4. AMBIEN [Concomitant]
  5. ATIVAN [Concomitant]

REACTIONS (3)
  - DRUG INEFFECTIVE [None]
  - DYSGEUSIA [None]
  - INSOMNIA [None]
